FAERS Safety Report 7470064-X (Version None)
Quarter: 2011Q2

REPORT INFORMATION
  Report Type: 
  Country: None (occurrence: None)
  Receive Date: 20110510
  Receipt Date: 20110509
  Transmission Date: 20111010
  Serious: Yes (Hospitalization, Other)
  Sender: FDA-Public Use
  Company Number: A0847961A

PATIENT
  Age: 46 Year
  Sex: Female

DRUGS (1)
  1. ALLI [Suspect]
     Route: 048

REACTIONS (7)
  - ABDOMINAL PAIN LOWER [None]
  - NAUSEA [None]
  - PERITONEAL INFECTION [None]
  - FAT NECROSIS [None]
  - LAPAROSCOPIC SURGERY [None]
  - DIARRHOEA [None]
  - CHILLS [None]
